FAERS Safety Report 8959981 (Version 1)
Quarter: 2012Q4

REPORT INFORMATION
  Report Type: Report from Study
  Country: GB (occurrence: GB)
  Receive Date: 20121212
  Receipt Date: 20121212
  Transmission Date: 20130627
  Serious: Yes (Hospitalization)
  Sender: FDA-Public Use
  Company Number: GB-TEVA-366542USA

PATIENT
  Age: 72 Year
  Sex: Male
  Weight: 61.7 kg

DRUGS (3)
  1. TREANDA [Suspect]
     Dosage: UID/QD
     Route: 042
     Dates: start: 20120927
  2. RITUXIMAB [Suspect]
     Dosage: UID/QD
     Route: 042
     Dates: start: 20120926
  3. BENDROFLUMETHIAZIDE [Concomitant]

REACTIONS (1)
  - Cellulitis [Recovered/Resolved]
